FAERS Safety Report 11612098 (Version 3)
Quarter: 2016Q1

REPORT INFORMATION
  Report Type: Spontaneous
  Country: US (occurrence: US)
  Receive Date: 20151008
  Receipt Date: 20160321
  Transmission Date: 20160525
  Serious: No
  Sender: FDA-Public Use
  Company Number: US-VERTEX PHARMACEUTICALS-2015-004287

PATIENT
  Age: 31 Year
  Sex: Male
  Weight: 67 kg

DRUGS (13)
  1. PULMOZYME [Concomitant]
     Active Substance: DORNASE ALFA
     Dosage: 2.5 ML, BID
     Route: 055
  2. STERILE WATER [Concomitant]
     Active Substance: WATER
     Dosage: 4 ML, BID
     Route: 055
  3. SODIUM CHLORIDE. [Concomitant]
     Active Substance: SODIUM CHLORIDE
     Dosage: 1 VIAL, BID
     Route: 055
  4. XOPENEX [Concomitant]
     Active Substance: LEVALBUTEROL HYDROCHLORIDE
     Dosage: 3 ML, QID
     Route: 055
  5. ORKAMBI [Suspect]
     Active Substance: IVACAFTOR\LUMACAFTOR
     Indication: CYSTIC FIBROSIS
     Dosage: 400 MG-250 MG, BID
     Route: 048
     Dates: start: 201508
  6. COLISTIN [Concomitant]
     Active Substance: COLISTIN
     Dosage: 150 MG, BID, TAKE ON 28 DAY AND OFF 28 DAY CYCLE
     Route: 055
  7. AZTREONAM. [Concomitant]
     Active Substance: AZTREONAM
     Dosage: 75 MG, TID
     Route: 055
  8. TOBI [Concomitant]
     Active Substance: TOBRAMYCIN
     Dosage: 4 DF, BID
     Route: 055
  9. ZENPEP [Concomitant]
     Active Substance: PANCRELIPASE AMYLASE\PANCRELIPASE LIPASE\PANCRELIPASE PROTEASE
     Dosage: 5-6 CAPSULES WITH MELAS AND SNACKS 6 TIMES DAILY
     Route: 048
  10. ZITHROMAX [Concomitant]
     Active Substance: AZITHROMYCIN DIHYDRATE
     Dosage: 2 DF, MON, WED, FRI
     Route: 048
  11. AQUADEKS [Concomitant]
     Active Substance: MINERALS\VITAMINS
     Dosage: 2 DF, QD
  12. FLONASE [Concomitant]
     Active Substance: FLUTICASONE PROPIONATE
     Dosage: 2 SPARY, QD
     Route: 055
  13. XOPENEX HFA [Concomitant]
     Active Substance: LEVALBUTEROL TARTRATE
     Dosage: 2 PUFFS, PRN
     Route: 055

REACTIONS (5)
  - Infective pulmonary exacerbation of cystic fibrosis [Unknown]
  - Pulmonary function test decreased [Recovered/Resolved]
  - Dizziness [Unknown]
  - Haemoptysis [Unknown]
  - Respiration abnormal [Recovered/Resolved]

NARRATIVE: CASE EVENT DATE: 201508
